FAERS Safety Report 21697003 (Version 1)
Quarter: 2022Q4

REPORT INFORMATION
  Report Type: Spontaneous
  Country: IT (occurrence: IT)
  Receive Date: 20221208
  Receipt Date: 20221208
  Transmission Date: 20230113
  Serious: Yes (Other)
  Sender: FDA-Public Use
  Company Number: IT-SUN PHARMACEUTICAL INDUSTRIES LTD-2022RR-367529

PATIENT
  Age: 69 Year
  Sex: Male
  Weight: 68 kg

DRUGS (4)
  1. OXALIPLATIN [Suspect]
     Active Substance: OXALIPLATIN
     Indication: Adenocarcinoma gastric
     Dosage: 150 MILLIGRAM, CYCLE 4 DAYS 1 CYCLE EVERY 14 D
     Route: 042
     Dates: start: 20221114, end: 20221114
  2. DOCETAXEL [Concomitant]
     Active Substance: DOCETAXEL
     Indication: Adenocarcinoma gastric
     Dosage: 90 MILLIGRAM, UNK
     Route: 065
  3. ONDANSETRON [Concomitant]
     Active Substance: ONDANSETRON
     Indication: Prophylaxis of nausea and vomiting
     Dosage: 8 MILLIGRAM, UNK
     Route: 042
     Dates: start: 20221114, end: 20221114
  4. Desametason [Concomitant]
     Indication: Anaphylaxis prophylaxis
     Dosage: 8 MILLIGRAM, UNK
     Route: 042
     Dates: start: 20221114, end: 20221114

REACTIONS (3)
  - Dyspnoea at rest [Recovered/Resolved]
  - Band sensation [Recovered/Resolved]
  - Bronchospasm [Recovered/Resolved]

NARRATIVE: CASE EVENT DATE: 20221114
